FAERS Safety Report 4292154-5 (Version None)
Quarter: 2004Q1

REPORT INFORMATION
  Report Type: 
  Country: None (occurrence: None)
  Receive Date: 20040211
  Receipt Date: 20031219
  Transmission Date: 20041129
  Serious: No
  Sender: FDA-Public Use
  Company Number: US-GLAXOSMITHKLINE-A0443789A

PATIENT
  Sex: Female

DRUGS (7)
  1. LAMICTAL [Suspect]
     Indication: BIPOLAR DISORDER
     Dosage: 75MG PER DAY
     Route: 048
  2. CELEXA [Concomitant]
  3. KLONOPIN [Concomitant]
  4. AMBIEN [Concomitant]
  5. NEURONTIN [Concomitant]
  6. TOPAMAX [Concomitant]
  7. RITALIN [Concomitant]

REACTIONS (1)
  - SKIN DISCOLOURATION [None]
